FAERS Safety Report 24159987 (Version 1)
Quarter: 2024Q3

REPORT INFORMATION
  Report Type: Spontaneous
  Country: US (occurrence: US)
  Receive Date: 20240801
  Receipt Date: 20240801
  Transmission Date: 20241016
  Serious: No
  Sender: IRONSHORE PHARMA
  Company Number: US-Ironshore Pharmaceuticals Inc.-IRON20240821

PATIENT
  Age: 19 Year
  Sex: Female

DRUGS (4)
  1. JORNAY PM EXTENDED-RELEASE [Suspect]
     Active Substance: METHYLPHENIDATE HYDROCHLORIDE
     Indication: Attention deficit hyperactivity disorder
     Dosage: DOSE INCREASED TO 80 MG, UNKNOWN
     Route: 048
     Dates: end: 202404
  2. JORNAY PM EXTENDED-RELEASE [Suspect]
     Active Substance: METHYLPHENIDATE HYDROCHLORIDE
     Indication: Attention deficit hyperactivity disorder
     Dosage: DECREASED BACK TO 60 MG, UNKNOWN
     Route: 048
     Dates: start: 20240403, end: 20240408
  3. JORNAY PM EXTENDED-RELEASE [Suspect]
     Active Substance: METHYLPHENIDATE HYDROCHLORIDE
     Dosage: TITRATED UP TO 60 MG, UNKNOWN
     Route: 048
  4. JORNAY PM EXTENDED-RELEASE [Suspect]
     Active Substance: METHYLPHENIDATE HYDROCHLORIDE
     Indication: Attention deficit hyperactivity disorder
     Dosage: 40 MG, UNKNOWN
     Route: 048

REACTIONS (7)
  - Hypoaesthesia [Unknown]
  - Paraesthesia [Unknown]
  - Feeling jittery [Unknown]
  - Brain fog [Unknown]
  - Disturbance in attention [Unknown]
  - Product use issue [None]
  - Drug intolerance [Unknown]
